FAERS Safety Report 11836757 (Version 1)
Quarter: 2015Q4

REPORT INFORMATION
  Report Type: Spontaneous
  Country: GB (occurrence: None)
  Receive Date: 20151214
  Receipt Date: 20151214
  Transmission Date: 20160305
  Serious: No
  Sender: FDA-Public Use
  Company Number: GB2015K7619SPO

PATIENT
  Age: 70 Year
  Sex: Male

DRUGS (4)
  1. ENBREL [Concomitant]
     Active Substance: ETANERCEPT
  2. LANSOPRAZOLE GENERIC (LANSOPRAZOLE) UNKNOWN; REGIMEN #1 [Suspect]
     Active Substance: LANSOPRAZOLE
     Indication: NAUSEA
  3. LANSOPRAZOLE GENERIC (LANSOPRAZOLE) UNKNOWN; REGIMEN #1 [Suspect]
     Active Substance: LANSOPRAZOLE
     Indication: DYSPEPSIA
  4. ABIRATERONE (ABIRATERONE) [Concomitant]

REACTIONS (1)
  - Drug ineffective [None]
